FAERS Safety Report 20048084 (Version 1)
Quarter: 2021Q4

REPORT INFORMATION
  Report Type: Spontaneous
  Country: US (occurrence: US)
  Receive Date: 20211109
  Receipt Date: 20211109
  Transmission Date: 20220303
  Serious: No
  Sender: FDA-Public Use
  Company Number: US-BAYER-2021A226714

PATIENT
  Age: 67 Year
  Sex: Female

DRUGS (2)
  1. ALEVE [Suspect]
     Active Substance: NAPROXEN SODIUM
     Indication: Pain
     Dosage: UNK
  2. DUPIXENT [Concomitant]
     Active Substance: DUPILUMAB
     Indication: Eczema
     Dosage: 300 MG,QW
     Dates: start: 20210301

REACTIONS (2)
  - Adverse drug reaction [Unknown]
  - Product use in unapproved indication [None]

NARRATIVE: CASE EVENT DATE: 20210101
